FAERS Safety Report 19088685 (Version 1)
Quarter: 2021Q2

REPORT INFORMATION
  Report Type: Spontaneous
  Country: KR (occurrence: KR)
  Receive Date: 20210402
  Receipt Date: 20210402
  Transmission Date: 20210717
  Serious: No
  Sender: FDA-Public Use
  Company Number: KR-LUPIN PHARMACEUTICALS INC.-2021-03906

PATIENT
  Age: 18 Year
  Sex: Female

DRUGS (3)
  1. HYDROCORTISONE BUTYRATE LOTION [Suspect]
     Active Substance: HYDROCORTISONE BUTYRATE
     Indication: RASH PRURITIC
  2. HYDROCORTISONE BUTYRATE LOTION [Suspect]
     Active Substance: HYDROCORTISONE BUTYRATE
     Indication: RASH PUSTULAR
  3. HYDROCORTISONE BUTYRATE LOTION [Suspect]
     Active Substance: HYDROCORTISONE BUTYRATE
     Indication: RASH ERYTHEMATOUS
     Dosage: UNK FORMULATION: LOTION
     Route: 061

REACTIONS (2)
  - Dermatitis contact [Recovering/Resolving]
  - Paradoxical drug reaction [Recovering/Resolving]
